FAERS Safety Report 7322687-6 (Version None)
Quarter: 2011Q1

REPORT INFORMATION
  Report Type: 
  Country: None (occurrence: None)
  Receive Date: 20110301
  Receipt Date: 20100427
  Transmission Date: 20110831
  Serious: No
  Sender: FDA-Public Use
  Company Number: US-PFIZER INC-2010053140

PATIENT
  Sex: Female

DRUGS (4)
  1. INSULIN GLARGINE [Suspect]
     Indication: TYPE 2 DIABETES MELLITUS
     Dosage: 100 IU/ML, DAILY
     Route: 058
     Dates: start: 20090101
  2. MORPHINE [Concomitant]
     Dosage: UNK
  3. ACTOS [Suspect]
     Dosage: UNK
     Route: 065
  4. GLIPIZIDE [Suspect]
     Dosage: UNK
     Route: 065

REACTIONS (3)
  - BLOOD GLUCOSE DECREASED [None]
  - ANXIETY [None]
  - BLOOD GLUCOSE INCREASED [None]
